FAERS Safety Report 5728646-9 (Version None)
Quarter: 2008Q2

REPORT INFORMATION
  Report Type: 
  Country: None (occurrence: None)
  Receive Date: 20080502
  Receipt Date: 20080502
  Transmission Date: 20081010
  Serious: Yes (Disabling, Other)
  Sender: FDA-Public Use
  Company Number: None

PATIENT
  Age: 81 Year
  Sex: Female
  Weight: 108.8633 kg

DRUGS (1)
  1. DIGITEK 125MCG TABLET BER [Suspect]
     Indication: ATRIAL FIBRILLATION
     Dosage: 125 MCG 1 DAILY PO
     Route: 048
     Dates: start: 20030901, end: 20080429

REACTIONS (10)
  - ANOREXIA [None]
  - FATIGUE [None]
  - GASTROINTESTINAL DISORDER [None]
  - HALLUCINATION, VISUAL [None]
  - JOINT SWELLING [None]
  - MEMORY IMPAIRMENT [None]
  - OEDEMA PERIPHERAL [None]
  - OXYGEN SATURATION DECREASED [None]
  - RENAL IMPAIRMENT [None]
  - SOMNOLENCE [None]
